FAERS Safety Report 8833798 (Version 1)
Quarter: 2012Q4

REPORT INFORMATION
  Report Type: Spontaneous
  Country: None (occurrence: None)
  Receive Date: 20121005
  Receipt Date: 20121005
  Transmission Date: 20130627
  Serious: Yes (Hospitalization, Other)
  Sender: FDA-Public Use
  Company Number: AUR-APL-2012-04272

PATIENT
  Age: 75 Year
  Sex: Female

DRUGS (5)
  1. CITALOPRAM (CITALOPRAM) [Suspect]
     Indication: ANTIDEPRESSANT THERAPY
  2. TRAMADOL HCL [Suspect]
     Indication: ANALGESIC THERAPY
  3. ONDANSETRON [Suspect]
     Indication: ANTIEMETIC SUPPORTIVE CARE
  4. METHYLENE BLUE [Suspect]
     Indication: PARATHYROID GLAND OPERATION
     Dosage: 5.5 mg/kg in 300 mL of 0.9% sodium chloride
     Route: 042
  5. FENTANYL [Suspect]
     Indication: ANALGESIA

REACTIONS (4)
  - Restless legs syndrome [None]
  - Respiratory distress [None]
  - Pneumonia [None]
  - Serotonin syndrome [None]
